FAERS Safety Report 4945180-4 (Version None)
Quarter: 2006Q1

REPORT INFORMATION
  Report Type: 
  Country: None (occurrence: None)
  Receive Date: 20060117
  Receipt Date: 20051108
  Transmission Date: 20060701
  Serious: Yes (Other)
  Sender: FDA-Public Use
  Company Number: A03200503597

PATIENT

DRUGS (2)
  1. PLAVIX [Suspect]
     Indication: STENT PLACEMENT
     Dosage: 75 MG BID - ORAL
     Route: 048
  2. THALIDOMIDE [Concomitant]

REACTIONS (2)
  - DRUG RESISTANCE [None]
  - STENT OCCLUSION [None]
